FAERS Safety Report 24182832 (Version 1)
Quarter: 2024Q3

REPORT INFORMATION
  Report Type: Report from Study
  Country: DE (occurrence: None)
  Receive Date: 20240807
  Receipt Date: 20240807
  Transmission Date: 20241016
  Serious: Yes (Hospitalization)
  Sender: ASTRAZENECA
  Company Number: 2024A172752

PATIENT
  Age: 85 Year
  Sex: Male
  Weight: 68 kg

DRUGS (3)
  1. CALQUENCE [Suspect]
     Active Substance: ACALABRUTINIB
     Indication: Chronic lymphocytic leukaemia
     Dosage: UNK, QD
     Route: 048
     Dates: start: 20210903
  2. PRIVIGEN [Suspect]
     Active Substance: HUMAN IMMUNOGLOBULIN G
     Indication: Secondary immunodeficiency
     Dosage: UNK, QMT
     Route: 042
     Dates: start: 20240606, end: 20240606
  3. CLEMASTINE [Concomitant]
     Active Substance: CLEMASTINE
     Dosage: 2 MG2.0MG UNKNOWN

REACTIONS (2)
  - Ureteral wall thickening [Recovered/Resolved]
  - Acquired phimosis [Recovered/Resolved]

NARRATIVE: CASE EVENT DATE: 20240709
